FAERS Safety Report 24246200 (Version 2)
Quarter: 2024Q3

REPORT INFORMATION
  Report Type: Report from Study
  Country: PE (occurrence: PE)
  Receive Date: 20240824
  Receipt Date: 20240828
  Transmission Date: 20241017
  Serious: Yes (Death, Hospitalization, Other)
  Sender: NOVARTIS
  Company Number: PE-002147023-NVSC2024PE169685

PATIENT
  Age: 72 Year
  Sex: Female

DRUGS (1)
  1. KISQALI [Suspect]
     Active Substance: RIBOCICLIB
     Indication: Breast cancer metastatic
     Dosage: 600 MG, QD (BY MOUTH)
     Route: 048
     Dates: start: 20240808

REACTIONS (4)
  - Death [Fatal]
  - Femur fracture [Unknown]
  - Pain in extremity [Unknown]
  - Inflammation [Unknown]

NARRATIVE: CASE EVENT DATE: 20240816
